FAERS Safety Report 9248006 (Version 1)
Quarter: 2013Q1

REPORT INFORMATION
  Report Type: Spontaneous
  Country: US (occurrence: None)
  Receive Date: 20130305
  Receipt Date: 20130305
  Transmission Date: 20140127
  Serious: Yes (Other)
  Sender: FDA-Public Use
  Company Number: 163-21880-12053064

PATIENT
  Age: 74 Year
  Sex: Male

DRUGS (5)
  1. REVLIMID [Suspect]
     Indication: PLASMA CELL MYELOMA
     Route: 048
     Dates: start: 20110705
  2. ALKERAN (MELPHALAN) [Concomitant]
  3. MEGACE (MEGESTROL ACETATE) [Concomitant]
  4. MILK OF MAGNESIA (MAGNESIUM HYDROXIDE) [Concomitant]
  5. PREDNISONE (PREDNISONE) [Concomitant]

REACTIONS (1)
  - Pancytopenia [None]
